FAERS Safety Report 7561001-8 (Version None)
Quarter: 2011Q2

REPORT INFORMATION
  Report Type: 
  Country: None (occurrence: None)
  Receive Date: 20110621
  Receipt Date: 20100319
  Transmission Date: 20111010
  Serious: No
  Sender: FDA-Public Use
  Company Number: US-ASTRAZENECA-2010SE12439

PATIENT
  Sex: Female

DRUGS (2)
  1. TOPROL-XL [Suspect]
     Route: 048
  2. ATACAND HCT [Suspect]
     Dosage: 32/12.5 MG
     Route: 048

REACTIONS (3)
  - HYPERTENSION [None]
  - GASTROENTERITIS BACTERIAL [None]
  - INTRACARDIAC THROMBUS [None]
